FAERS Safety Report 19975501 (Version 3)
Quarter: 2022Q4

REPORT INFORMATION
  Report Type: Spontaneous
  Country: US (occurrence: US)
  Receive Date: 20211020
  Receipt Date: 20221117
  Transmission Date: 20230113
  Serious: Yes (Hospitalization, Other)
  Sender: FDA-Public Use
  Company Number: US-MLMSERVICE-20211008-3155851-1

PATIENT
  Age: 30 Year
  Sex: Male

DRUGS (1)
  1. FENTANYL CITRATE [Suspect]
     Active Substance: FENTANYL CITRATE
     Dosage: UNK

REACTIONS (5)
  - Drug use disorder [Recovering/Resolving]
  - Drug withdrawal syndrome [Recovering/Resolving]
  - Tremor [Recovering/Resolving]
  - Myalgia [Recovering/Resolving]
  - Hyperhidrosis [Recovering/Resolving]
